FAERS Safety Report 6933026-4 (Version None)
Quarter: 2010Q3

REPORT INFORMATION
  Report Type: 
  Country: None (occurrence: None)
  Receive Date: 20100818
  Receipt Date: 20100818
  Transmission Date: 20110219
  Serious: Yes (Hospitalization)
  Sender: FDA-Public Use
  Company Number: None

PATIENT
  Age: 66 Year
  Sex: Male
  Weight: 109 kg

DRUGS (1)
  1. CARBOPLATIN [Suspect]
     Indication: HEPATIC NEOPLASM MALIGNANT
     Dosage: 441 MG OTHER IV
     Route: 042
     Dates: start: 20100411, end: 20100619

REACTIONS (1)
  - NEUTROPENIA [None]
